FAERS Safety Report 5926716-3 (Version None)
Quarter: 2008Q4

REPORT INFORMATION
  Report Type: 
  Country: None (occurrence: None)
  Receive Date: 20081017
  Receipt Date: 20081006
  Transmission Date: 20090506
  Serious: Yes (Other)
  Sender: FDA-Public Use
  Company Number: ENTC2008-0321

PATIENT
  Age: 58 Year
  Sex: Male

DRUGS (5)
  1. STALEVO 100 [Suspect]
     Indication: PARKINSON'S DISEASE
     Dosage: EVERY THREE HOURS
  2. MADOPAR [Concomitant]
  3. EPILIM [Concomitant]
  4. NEURONTIN [Concomitant]
  5. LAMICTAL ^BURROUGHS WELCOME^ [Concomitant]

REACTIONS (3)
  - FREEZING PHENOMENON [None]
  - HYPOKINESIA [None]
  - MUSCULOSKELETAL STIFFNESS [None]
